FAERS Safety Report 14591907 (Version 1)
Quarter: 2018Q1

REPORT INFORMATION
  Report Type: Spontaneous
  Country: US (occurrence: US)
  Receive Date: 20180302
  Receipt Date: 20180302
  Transmission Date: 20180509
  Serious: Yes (Other)
  Sender: FDA-Public Use
  Company Number: US-TEVA-2018-US-863490

PATIENT
  Age: 64 Year
  Sex: Female

DRUGS (9)
  1. AZILECT [Suspect]
     Active Substance: RASAGILINE MESYLATE
     Indication: PARKINSON^S DISEASE
     Dates: start: 201501
  2. LANTUS [Concomitant]
     Active Substance: INSULIN GLARGINE
  3. METAPROLOL [Concomitant]
     Active Substance: METOPROLOL
  4. SPIRONOLACTONE. [Concomitant]
     Active Substance: SPIRONOLACTONE
  5. ZONISAMIDE. [Concomitant]
     Active Substance: ZONISAMIDE
  6. TRAZODONE [Concomitant]
     Active Substance: TRAZODONE HYDROCHLORIDE
  7. METFORMIN [Concomitant]
     Active Substance: METFORMIN HYDROCHLORIDE
  8. LOTENSIN [Concomitant]
     Active Substance: BENAZEPRIL HYDROCHLORIDE
  9. NOVOLOG [Concomitant]
     Active Substance: INSULIN ASPART

REACTIONS (7)
  - Adenoma benign [Recovered/Resolved]
  - Adverse event [Unknown]
  - Myoclonus [Not Recovered/Not Resolved]
  - Blood calcium increased [Not Recovered/Not Resolved]
  - Insomnia [Not Recovered/Not Resolved]
  - Blood iron decreased [Recovered/Resolved]
  - Adenoma benign [Unknown]

NARRATIVE: CASE EVENT DATE: 201704
